FAERS Safety Report 7449233-0 (Version None)
Quarter: 2011Q2

REPORT INFORMATION
  Report Type: 
  Country: None (occurrence: None)
  Receive Date: 20110502
  Receipt Date: 20110421
  Transmission Date: 20111010
  Serious: Yes (Hospitalization)
  Sender: FDA-Public Use
  Company Number: 2005BI014920

PATIENT
  Age: 49 Year
  Sex: Female

DRUGS (2)
  1. AVONEX [Suspect]
     Indication: MULTIPLE SCLEROSIS
     Route: 030
     Dates: start: 19990813, end: 20030801
  2. AVONEX [Suspect]
     Route: 030
     Dates: start: 20030801, end: 20070825

REACTIONS (6)
  - MYALGIA [None]
  - MUSCLE SPASTICITY [None]
  - LOSS OF CONSCIOUSNESS [None]
  - TRIGEMINAL NEURALGIA [None]
  - MUSCLE SPASMS [None]
  - DRUG DELIVERY DEVICE IMPLANTATION [None]
